FAERS Safety Report 22045581 (Version 1)
Quarter: 2023Q1

REPORT INFORMATION
  Report Type: Spontaneous
  Country: US (occurrence: US)
  Receive Date: 20230228
  Receipt Date: 20230228
  Transmission Date: 20230417
  Serious: No
  Sender: FDA-Public Use
  Company Number: US-Covis Pharma GmbH-2023COV00452

PATIENT
  Age: 29 Year
  Sex: Female

DRUGS (2)
  1. MAKENA [Suspect]
     Active Substance: HYDROXYPROGESTERONE CAPROATE
     Indication: Product used for unknown indication
     Route: 058
  2. INSULIN NOS [Concomitant]
     Active Substance: INSULIN NOS
     Indication: Type 1 diabetes mellitus
     Dosage: 2 TYPES OF INSULIN; ONE IS 24 HOURS AND ONE IS MORE AROUND MEALS

REACTIONS (2)
  - Blood glucose increased [Not Recovered/Not Resolved]
  - Injection site pain [Not Recovered/Not Resolved]
